FAERS Safety Report 17092825 (Version 2)
Quarter: 2019Q4

REPORT INFORMATION
  Report Type: Spontaneous
  Country: RO (occurrence: RO)
  Receive Date: 20191129
  Receipt Date: 20191218
  Transmission Date: 20200122
  Serious: Yes (Other)
  Sender: FDA-Public Use
  Company Number: RO-AMGEN-ROUSP2019195301

PATIENT
  Sex: Male

DRUGS (1)
  1. VECTIBIX [Suspect]
     Active Substance: PANITUMUMAB
     Indication: COLORECTAL CANCER METASTATIC
     Dosage: 6 MILLIGRAM/KILOGRAM, Q2WK
     Route: 042
     Dates: start: 201805, end: 201904

REACTIONS (9)
  - Staphylococcal infection [Unknown]
  - Dermatitis acneiform [Unknown]
  - Poikiloderma [Unknown]
  - Dry skin [Unknown]
  - Paronychia [Unknown]
  - Trichomegaly [Unknown]
  - Photosensitivity reaction [Unknown]
  - Telangiectasia [Unknown]
  - Trichorrhexis [Unknown]

NARRATIVE: CASE EVENT DATE: 2018
